FAERS Safety Report 19888551 (Version 1)
Quarter: 2021Q3

REPORT INFORMATION
  Report Type: Spontaneous
  Country: US (occurrence: US)
  Receive Date: 20210927
  Receipt Date: 20210927
  Transmission Date: 20211014
  Serious: Yes (Hospitalization)
  Sender: FDA-Public Use
  Company Number: None

PATIENT
  Sex: Female

DRUGS (1)
  1. FORTEO [Suspect]
     Active Substance: TERIPARATIDE
     Indication: OSTEOPOROSIS
     Route: 058
     Dates: start: 20210901, end: 20210922

REACTIONS (7)
  - Syncope [None]
  - Electrolyte imbalance [None]
  - Renal impairment [None]
  - Vomiting [None]
  - Muscle spasms [None]
  - Nausea [None]
  - Loss of consciousness [None]
